FAERS Safety Report 7539303-0 (Version None)
Quarter: 2011Q2

REPORT INFORMATION
  Report Type: 
  Country: None (occurrence: None)
  Receive Date: 20110610
  Receipt Date: 20110531
  Transmission Date: 20111010
  Serious: Yes (Other)
  Sender: FDA-Public Use
  Company Number: CA-JNJFOC-20110512866

PATIENT
  Sex: Male
  Weight: 87 kg

DRUGS (2)
  1. REMICADE [Suspect]
     Indication: PSORIASIS
     Route: 042
     Dates: start: 20110501
  2. REMICADE [Suspect]
     Route: 042
     Dates: start: 20110406

REACTIONS (2)
  - GAIT DISTURBANCE [None]
  - ARTHRALGIA [None]
